FAERS Safety Report 16006268 (Version 4)
Quarter: 2019Q2

REPORT INFORMATION
  Report Type: Spontaneous
  Country: JP (occurrence: JP)
  Receive Date: 20190226
  Receipt Date: 20190604
  Transmission Date: 20190711
  Serious: Yes (Death, Hospitalization, Other)
  Sender: FDA-Public Use
  Company Number: JP-PFIZER INC-2019083819

PATIENT
  Age: 59 Year
  Sex: Male
  Weight: 48.6 kg

DRUGS (2)
  1. CABERGOLINE. [Suspect]
     Active Substance: CABERGOLINE
     Indication: PROLACTIN-PRODUCING PITUITARY TUMOUR
  2. CABERGOLINE. [Suspect]
     Active Substance: CABERGOLINE
     Indication: ACROMEGALY
     Dosage: 0.25 MG, 1X/DAY
     Route: 048
     Dates: start: 2009

REACTIONS (2)
  - Fibrosarcoma [Fatal]
  - Sepsis [Fatal]

NARRATIVE: CASE EVENT DATE: 20110710
